FAERS Safety Report 25288044 (Version 1)
Quarter: 2025Q2

REPORT INFORMATION
  Report Type: Spontaneous
  Country: US (occurrence: US)
  Receive Date: 20250509
  Receipt Date: 20250509
  Transmission Date: 20250717
  Serious: Yes (Hospitalization, Other)
  Sender: ARDELYX
  Company Number: US-ARDELYX-2025ARDX003176

PATIENT
  Age: 27 Year
  Sex: Female

DRUGS (1)
  1. IBSRELA [Suspect]
     Active Substance: TENAPANOR HYDROCHLORIDE
     Indication: Constipation
     Route: 065
     Dates: start: 202504, end: 202504

REACTIONS (3)
  - Diarrhoea [Unknown]
  - Intestinal obstruction [Unknown]
  - Off label use [Unknown]

NARRATIVE: CASE EVENT DATE: 20250401
